FAERS Safety Report 10585390 (Version 1)
Quarter: 2014Q4

REPORT INFORMATION
  Report Type: Spontaneous
  Country: GR (occurrence: None)
  Receive Date: 20141113
  Receipt Date: 20141113
  Transmission Date: 20150529
  Serious: Yes (Hospitalization, Other)
  Sender: FDA-Public Use
  Company Number: GR-ZYDUS-005447

PATIENT
  Age: 71 Year
  Sex: Female

DRUGS (11)
  1. GLIMEPIRIDE (GLIMEPIRIDE) [Suspect]
     Active Substance: GLIMEPIRIDE
     Indication: DIABETES MELLITUS
  2. METFORMIN [Suspect]
     Active Substance: METFORMIN HYDROCHLORIDE
     Indication: DIABETES MELLITUS
  3. ATORVASTATIN (ATORVASTATIN) [Suspect]
     Active Substance: ATORVASTATIN
     Indication: DYSLIPIDAEMIA
  4. ATENOLOL (ATENOLOL) [Suspect]
     Active Substance: ATENOLOL
     Indication: HYPERTENSION
  5. BROMAZEPAM (BROMAZEPAM) [Suspect]
     Active Substance: BROMAZEPAM
     Indication: AGITATED DEPRESSION
  6. FLUOXETINE (FLUOXETINE) [Suspect]
     Active Substance: FLUOXETINE HYDROCHLORIDE
     Indication: AGITATED DEPRESSION
  7. VALSARTAN (VALSARTAN) [Suspect]
     Active Substance: VALSARTAN
     Indication: HYPERTENSION
  8. OMEPRAZOLE(OMEPRAZOLE) [Suspect]
     Active Substance: OMEPRAZOLE
  9. TRIMETAZIDINE [Suspect]
     Active Substance: TRIMETAZIDINE
     Indication: VERTIGO
  10. INDAPAMIDE. [Suspect]
     Active Substance: INDAPAMIDE
     Indication: HYPERTENSION
  11. LACIDIPINE [Suspect]
     Active Substance: LACIDIPINE
     Indication: HYPERTENSION

REACTIONS (1)
  - Drug-induced liver injury [None]
